FAERS Safety Report 18001821 (Version 1)
Quarter: 2020Q3

REPORT INFORMATION
  Report Type: Spontaneous
  Country: None (occurrence: US)
  Receive Date: 20200709
  Receipt Date: 20200709
  Transmission Date: 20201103
  Serious: Yes (Other)
  Sender: FDA-Public Use
  Company Number: US-IMPRIMIS NJOF-2087180

PATIENT

DRUGS (1)
  1. PREDNISOLONE?BROMFENAC SOLUTION [Suspect]
     Active Substance: BROMFENAC SODIUM\PREDNISOLONE SODIUM PHOSPHATE
     Route: 047

REACTIONS (1)
  - Retinal pigment epitheliopathy [None]
